FAERS Safety Report 23994862 (Version 1)
Quarter: 2024Q2

REPORT INFORMATION
  Report Type: Spontaneous
  Country: PT (occurrence: PT)
  Receive Date: 20240620
  Receipt Date: 20240620
  Transmission Date: 20240716
  Serious: Yes (Hospitalization, Other)
  Sender: FDA-Public Use
  Company Number: PT-ORESUND-24OPAJY0066P

PATIENT
  Age: 61 Year
  Sex: Female

DRUGS (1)
  1. METHOTREXATE SODIUM [Suspect]
     Active Substance: METHOTREXATE SODIUM
     Indication: Rheumatoid arthritis
     Dosage: UNK
     Dates: start: 2010, end: 202109

REACTIONS (11)
  - Hepatic encephalopathy [Unknown]
  - Thrombocytopenia [Unknown]
  - Hyperammonaemia [Unknown]
  - Dysarthria [Unknown]
  - Cholestasis [Unknown]
  - Hypokinesia [Unknown]
  - Abnormal behaviour [Not Recovered/Not Resolved]
  - Hepatic cirrhosis [Recovering/Resolving]
  - Memory impairment [Unknown]
  - Hepatic steatosis [Unknown]
  - Myoclonus [Recovering/Resolving]

NARRATIVE: CASE EVENT DATE: 20210901
